FAERS Safety Report 5777121-4 (Version None)
Quarter: 2008Q2

REPORT INFORMATION
  Report Type: 
  Country: None (occurrence: None)
  Receive Date: 20080617
  Receipt Date: 20080617
  Transmission Date: 20081010
  Serious: Yes (Life-Threatening, Hospitalization)
  Sender: FDA-Public Use
  Company Number: None

PATIENT
  Sex: Male
  Weight: 94.1 kg

DRUGS (13)
  1. TACROLIMUS [Suspect]
     Indication: PROPHYLAXIS AGAINST TRANSPLANT REJECTION
     Dosage: 1MG PO Q12H
     Route: 048
     Dates: start: 20080512, end: 20080521
  2. PREDNISONE [Concomitant]
  3. NYSTATIN [Concomitant]
  4. MYCOPHENOLATE MOFETIL [Concomitant]
  5. FLUCONAZOLE [Concomitant]
  6. ACYCLOVIR SODIUM [Concomitant]
  7. BACTRIM [Concomitant]
  8. INSULIN [Concomitant]
  9. LANSOPRAZOLE [Concomitant]
  10. FUROSEMIDE [Concomitant]
  11. LEVOFLOXACIN [Concomitant]
  12. ALBUTEROL [Concomitant]
  13. ACETAMINOPHEN AND OXYCODONE HCL [Concomitant]

REACTIONS (11)
  - AGGRESSION [None]
  - AGITATION [None]
  - CONFUSIONAL STATE [None]
  - DISORIENTATION [None]
  - DYSARTHRIA [None]
  - DYSPHAGIA [None]
  - LETHARGY [None]
  - MENTAL STATUS CHANGES [None]
  - SEPSIS [None]
  - THERAPEUTIC AGENT TOXICITY [None]
  - TREMOR [None]
